FAERS Safety Report 16162117 (Version 2)
Quarter: 2020Q3

REPORT INFORMATION
  Report Type: Spontaneous
  Country: NL (occurrence: NL)
  Receive Date: 20190405
  Receipt Date: 20200710
  Transmission Date: 20201102
  Serious: Yes (Other)
  Sender: FDA-Public Use
  Company Number: NL-AUROBINDO-AUR-APL-2019-017812

PATIENT
  Age: 38 Year
  Sex: Male

DRUGS (1)
  1. TRAMADOL HCL [Suspect]
     Active Substance: TRAMADOL HYDROCHLORIDE
     Indication: PAIN
     Dosage: 50 MILLIGRAM, 1?3D1CAPS
     Route: 048
     Dates: start: 20190226, end: 20190305

REACTIONS (1)
  - Anuria [Recovering/Resolving]

NARRATIVE: CASE EVENT DATE: 20190301
